FAERS Safety Report 5490050-9 (Version None)
Quarter: 2007Q4

REPORT INFORMATION
  Report Type: 
  Country: None (occurrence: None)
  Receive Date: 20071018
  Receipt Date: 20071015
  Transmission Date: 20080405
  Serious: Yes (Hospitalization)
  Sender: FDA-Public Use
  Company Number: KR-WYE-H00484407

PATIENT
  Sex: Male
  Weight: 63.7 kg

DRUGS (8)
  1. RAPAMUNE [Suspect]
     Indication: PROPHYLAXIS AGAINST TRANSPLANT REJECTION
     Route: 048
     Dates: start: 20070824, end: 20070824
  2. RAPAMUNE [Suspect]
     Route: 048
     Dates: start: 20070825
  3. PREDNISOLONE [Concomitant]
     Indication: PROPHYLAXIS AGAINST TRANSPLANT REJECTION
     Route: 048
     Dates: start: 20070823
  4. ALLOPURINOL [Concomitant]
     Indication: GOUT
     Route: 048
     Dates: start: 20070928
  5. DILATREND [Concomitant]
     Indication: HYPERTENSION
     Route: 048
     Dates: start: 20070823
  6. NORVASC [Concomitant]
     Indication: HYPERTENSION
     Route: 048
     Dates: start: 20070928
  7. SANDIMMUNE [Concomitant]
     Indication: PROPHYLAXIS AGAINST TRANSPLANT REJECTION
     Route: 048
     Dates: start: 20070823
  8. FAMOTIDINE [Concomitant]
     Indication: ANTACID THERAPY
     Route: 048
     Dates: start: 20070823

REACTIONS (1)
  - KIDNEY TRANSPLANT REJECTION [None]
